FAERS Safety Report 6751481-X (Version None)
Quarter: 2010Q2

REPORT INFORMATION
  Report Type: 
  Country: None (occurrence: None)
  Receive Date: 20100528
  Receipt Date: 20100521
  Transmission Date: 20101027
  Serious: Yes (Other)
  Sender: FDA-Public Use
  Company Number: A0860398A

PATIENT
  Age: 52 Year
  Sex: Female

DRUGS (1)
  1. ASPIRIN + PARACETAMOL POWDER (ACETAMINOPHEN + ASPIRIN [Suspect]
     Indication: DRUG USE FOR UNKNOWN INDICATION

REACTIONS (10)
  - ANGINA PECTORIS [None]
  - FEELING ABNORMAL [None]
  - FEELING JITTERY [None]
  - FORMICATION [None]
  - HEART RATE INCREASED [None]
  - HYPERSENSITIVITY [None]
  - HYPERTENSION [None]
  - INSOMNIA [None]
  - NERVOUSNESS [None]
  - PRODUCT EXPIRATION DATE ISSUE [None]
